FAERS Safety Report 8558574-5 (Version None)
Quarter: 2012Q3

REPORT INFORMATION
  Report Type: 
  Country: None (occurrence: None)
  Receive Date: 20120801
  Receipt Date: 20120723
  Transmission Date: 20120928
  Serious: Yes (Life-Threatening, Hospitalization, Other)
  Sender: FDA-Public Use
  Company Number: US-CELGENEUS-163-21880-12071560

PATIENT
  Sex: Female

DRUGS (3)
  1. REVLIMID [Suspect]
     Dosage: 5 MILLIGRAM
     Route: 048
     Dates: start: 20120501
  2. PLATELETS [Concomitant]
     Route: 041
  3. REVLIMID [Suspect]
     Dosage: 2.5 MILLIGRAM
     Route: 048
     Dates: start: 20120701

REACTIONS (3)
  - SEPSIS [None]
  - PLATELET COUNT DECREASED [None]
  - PANCYTOPENIA [None]
